FAERS Safety Report 5957585-3 (Version None)
Quarter: 2008Q4

REPORT INFORMATION
  Report Type: 
  Country: None (occurrence: None)
  Receive Date: 20081117
  Receipt Date: 20081117
  Transmission Date: 20090506
  Serious: Yes (Life-Threatening, Other)
  Sender: FDA-Public Use
  Company Number: None

PATIENT
  Age: 51 Year
  Sex: Male
  Weight: 86.1834 kg

DRUGS (1)
  1. AMBIEN [Suspect]
     Indication: SOMNOLENCE
     Dosage: 10 MG DAILY TO SLEEP
     Dates: start: 20020501

REACTIONS (9)
  - AGITATION [None]
  - AMNESIA [None]
  - ANXIETY [None]
  - CONFUSIONAL STATE [None]
  - DEPRESSION [None]
  - HALLUCINATION [None]
  - SLEEP-RELATED EATING DISORDER [None]
  - SOMNAMBULISM [None]
  - SUICIDAL IDEATION [None]
